FAERS Safety Report 10812231 (Version 1)
Quarter: 2015Q1

REPORT INFORMATION
  Report Type: Spontaneous
  Country: US (occurrence: US)
  Receive Date: 20150218
  Receipt Date: 20150218
  Transmission Date: 20150721
  Serious: Yes (Hospitalization, Other)
  Sender: FDA-Public Use
  Company Number: US-AMGEN-USASP2015014372

PATIENT
  Age: 71 Year
  Sex: Female

DRUGS (2)
  1. ENBREL [Suspect]
     Active Substance: ETANERCEPT
     Indication: RHEUMATOID ARTHRITIS
     Dosage: 25 MG, 2 TIMES/WK
     Route: 065
     Dates: start: 20001207
  2. FLEXERIL [Suspect]
     Active Substance: CYCLOBENZAPRINE HYDROCHLORIDE
     Indication: SURGERY
     Dosage: UNK
     Route: 065

REACTIONS (14)
  - Fall [Unknown]
  - Peripheral swelling [Not Recovered/Not Resolved]
  - Swollen tongue [Recovered/Resolved]
  - Dyspnoea [Recovered/Resolved]
  - Balance disorder [Unknown]
  - Rheumatoid arthritis [Recovered/Resolved]
  - Malaise [Recovered/Resolved]
  - Surgery [Recovered/Resolved]
  - Feeling hot [Not Recovered/Not Resolved]
  - Muscle spasms [Not Recovered/Not Resolved]
  - Adverse drug reaction [Recovered/Resolved]
  - Chest pain [Recovered/Resolved]
  - Back injury [Unknown]
  - Pharyngeal oedema [Recovered/Resolved]

NARRATIVE: CASE EVENT DATE: 2013
